FAERS Safety Report 19188744 (Version 1)
Quarter: 2021Q2

REPORT INFORMATION
  Report Type: Spontaneous
  Country: US (occurrence: US)
  Receive Date: 20210428
  Receipt Date: 20210428
  Transmission Date: 20210717
  Serious: No
  Sender: FDA-Public Use
  Company Number: US-JNJFOC-20210449609

PATIENT

DRUGS (3)
  1. QUERCETIN [Concomitant]
     Active Substance: QUERCETIN
     Indication: PRURITUS
     Route: 065
  2. CHILDRENS ZYRTEC [Suspect]
     Active Substance: CETIRIZINE HYDROCHLORIDE
     Indication: PRURITUS
     Dosage: 4ML EVERY THREE OR FOUR DAYS
     Route: 065
  3. VITAMIN C [Concomitant]
     Active Substance: ASCORBIC ACID
     Indication: PRURITUS
     Route: 065

REACTIONS (1)
  - Incorrect dose administered [Unknown]
